FAERS Safety Report 9473959 (Version 1)
Quarter: 2013Q3

REPORT INFORMATION
  Report Type: Spontaneous
  Country: US (occurrence: US)
  Receive Date: 20130823
  Receipt Date: 20130823
  Transmission Date: 20140515
  Serious: No
  Sender: FDA-Public Use
  Company Number: US-BRISTOL-MYERS SQUIBB COMPANY-17201062

PATIENT
  Age: 76 Year
  Sex: Male

DRUGS (5)
  1. SPRYCEL [Suspect]
     Indication: MYELOID LEUKAEMIA
     Dates: start: 20121108
  2. AMLODIPINE [Concomitant]
  3. BUPROPION [Concomitant]
  4. COREG [Concomitant]
  5. DIOVAN [Concomitant]

REACTIONS (1)
  - Fluid retention [Unknown]
